FAERS Safety Report 8481718-0 (Version None)
Quarter: 2012Q3

REPORT INFORMATION
  Report Type: 
  Country: None (occurrence: None)
  Receive Date: 20120702
  Receipt Date: 20120622
  Transmission Date: 20120928
  Serious: Yes (Hospitalization)
  Sender: FDA-Public Use
  Company Number: BR-ASTRAZENECA-2012SE42528

PATIENT
  Age: 66 Year
  Sex: Female
  Weight: 74 kg

DRUGS (7)
  1. CRESTOR [Suspect]
     Indication: BLOOD CHOLESTEROL INCREASED
     Route: 048
     Dates: start: 20081101
  2. PLAVIX [Suspect]
     Route: 048
     Dates: start: 20080101, end: 20101201
  3. ENDOFOLIN [Concomitant]
     Dosage: TWO TIMES A DAY
     Route: 048
     Dates: start: 20080101
  4. NORVASC [Concomitant]
     Route: 048
     Dates: start: 20080101
  5. OMEPRAZOLE [Suspect]
     Dosage: ONCE DAILY
     Route: 048
     Dates: start: 20080101
  6. SEROQUEL [Suspect]
     Indication: DEPRESSION
     Route: 048
     Dates: start: 20080101
  7. VITAMIN D [Concomitant]
     Route: 048
     Dates: start: 20080101

REACTIONS (5)
  - PLATELET COUNT DECREASED [None]
  - ABDOMINAL PAIN [None]
  - OFF LABEL USE [None]
  - FALL [None]
  - AORTIC ANEURYSM [None]
